FAERS Safety Report 23977679 (Version 1)
Quarter: 2024Q2

REPORT INFORMATION
  Report Type: Spontaneous
  Country: US (occurrence: None)
  Receive Date: 20240614
  Receipt Date: 20240614
  Transmission Date: 20240716
  Serious: No
  Sender: FDA-Public Use
  Company Number: None

PATIENT
  Sex: Male

DRUGS (3)
  1. ICATIBANT ACETATE [Suspect]
     Active Substance: ICATIBANT ACETATE
     Indication: Complement deficiency disease
     Dosage: OTHER QUANTITY : 30MG/3ML?FREQUENCY : AS DIRECTED;
     Route: 058
     Dates: start: 20230317
  2. TAKHZVRO PFS [Concomitant]
  3. XOLAIRSD PFS [Concomitant]

REACTIONS (3)
  - Lung disorder [None]
  - Oropharyngeal discomfort [None]
  - Facial discomfort [None]
